FAERS Safety Report 11684053 (Version 2)
Quarter: 2016Q1

REPORT INFORMATION
  Report Type: Spontaneous
  Country: US (occurrence: US)
  Receive Date: 20151029
  Receipt Date: 20160321
  Transmission Date: 20160525
  Serious: Yes (Life-Threatening, Hospitalization, Other)
  Sender: FDA-Public Use
  Company Number: US-MDT-ADR-2015-02048

PATIENT
  Age: 59 Year
  Sex: Male

DRUGS (2)
  1. BACLOFEN, UNKNOWN [Suspect]
     Active Substance: BACLOFEN
     Indication: MUSCLE SPASTICITY
     Dosage: 300 MCG/DAY
     Route: 037
  2. BACLOFEN, UNKNOWN [Suspect]
     Active Substance: BACLOFEN
     Indication: MUSCLE SPASTICITY
     Dosage: 900 CCS OR MG OF BACLOFEN
     Route: 037

REACTIONS (12)
  - Pain [Unknown]
  - Decubitus ulcer [Unknown]
  - Unevaluable event [Unknown]
  - Drug withdrawal syndrome [Unknown]
  - Muscle spasticity [Unknown]
  - Loss of consciousness [Unknown]
  - Muscle rigidity [Unknown]
  - Injury [Unknown]
  - Dyspnoea [Unknown]
  - Urinary tract infection [Unknown]
  - Muscle spasms [Unknown]
  - Insomnia [Unknown]

NARRATIVE: CASE EVENT DATE: 201403
